FAERS Safety Report 18643189 (Version 1)
Quarter: 2020Q4

REPORT INFORMATION
  Report Type: Spontaneous
  Country: US (occurrence: US)
  Receive Date: 20201221
  Receipt Date: 20201221
  Transmission Date: 20210114
  Serious: No
  Sender: FDA-Public Use
  Company Number: US-PFIZER INC-2019406443

PATIENT
  Age: 74 Year
  Sex: Female

DRUGS (8)
  1. TRAMADOL. [Concomitant]
     Active Substance: TRAMADOL
     Indication: PAIN
     Dosage: UNK
  2. LYRICA [Suspect]
     Active Substance: PREGABALIN
     Indication: FIBROMYALGIA
  3. LYRICA [Suspect]
     Active Substance: PREGABALIN
     Indication: NEUROPATHY PERIPHERAL
     Dosage: 150 MG, 3X/DAY (90 CAPSULES, 4 REFILLS)
     Route: 048
     Dates: start: 20201208
  4. TYLENOL [Concomitant]
     Active Substance: ACETAMINOPHEN
     Dosage: UNK, 2X/DAY
  5. LYRICA [Suspect]
     Active Substance: PREGABALIN
     Indication: PAIN
  6. ELAVIL [ALLOPURINOL] [Concomitant]
     Active Substance: ALLOPURINOL
     Indication: NEUROPATHY PERIPHERAL
     Dosage: UNK, 1X/DAY(AT NIGHT)
  7. LYRICA [Suspect]
     Active Substance: PREGABALIN
     Indication: OSTEOARTHRITIS
  8. TRAMADOL. [Concomitant]
     Active Substance: TRAMADOL
     Indication: NEUROPATHY PERIPHERAL

REACTIONS (3)
  - Pain in extremity [Unknown]
  - Dry skin [Unknown]
  - Burning sensation [Unknown]

NARRATIVE: CASE EVENT DATE: 2020
